FAERS Safety Report 5869167-2 (Version None)
Quarter: 2008Q3

REPORT INFORMATION
  Report Type: 
  Country: None (occurrence: None)
  Receive Date: 20080827
  Receipt Date: 20080623
  Transmission Date: 20090109
  Serious: Yes (Other)
  Sender: FDA-Public Use
  Company Number: PHEH2008US05615

PATIENT
  Sex: Female

DRUGS (3)
  1. RECLAST [Suspect]
     Indication: OSTEOPOROSIS
     Dosage: INFUSION
     Dates: start: 20080620
  2. ZYRTEC [Concomitant]
  3. SINGULAIR [Concomitant]

REACTIONS (9)
  - ASTHMA [None]
  - BLOOD PRESSURE DECREASED [None]
  - DYSPHAGIA [None]
  - DYSPNOEA [None]
  - FATIGUE [None]
  - HYPERSENSITIVITY [None]
  - MUSCLE TIGHTNESS [None]
  - TREMOR [None]
  - VISION BLURRED [None]
